FAERS Safety Report 13714023 (Version 1)
Quarter: 2017Q3

REPORT INFORMATION
  Report Type: Spontaneous
  Country: US (occurrence: US)
  Receive Date: 20170704
  Receipt Date: 20170704
  Transmission Date: 20171127
  Serious: No
  Sender: FDA-Public Use
  Company Number: US-ASTRAZENECA-2017SE67634

PATIENT
  Sex: Female
  Weight: 63.5 kg

DRUGS (3)
  1. PULMICORT FLEXHALER [Suspect]
     Active Substance: BUDESONIDE
     Indication: ASTHMA
     Dosage: 180 MCG 2 INHALATIONS TWICE A DAY
     Route: 055
  2. PULMICORT FLEXHALER [Suspect]
     Active Substance: BUDESONIDE
     Indication: ASTHMA
     Dosage: 90 MCG 1 INHALATION ONCE A DAY
     Route: 055
  3. PULMICORT FLEXHALER [Suspect]
     Active Substance: BUDESONIDE
     Indication: ASTHMA
     Dosage: 90 MCG 1 INHALATION TWICE A DAY
     Route: 055

REACTIONS (5)
  - Asthma [Recovered/Resolved]
  - Memory impairment [Unknown]
  - Sinusitis [Unknown]
  - Off label use [Unknown]
  - Fatigue [Unknown]
